FAERS Safety Report 21787451 (Version 1)
Quarter: 2022Q4

REPORT INFORMATION
  Report Type: Spontaneous
  Country: TR (occurrence: TR)
  Receive Date: 20221228
  Receipt Date: 20221228
  Transmission Date: 20230112
  Serious: Yes (Other)
  Sender: FDA-Public Use
  Company Number: TR-002147023-NVSC2022TR298001

PATIENT
  Age: 54 Year
  Sex: Female

DRUGS (3)
  1. SANDOSTATIN LAR DEPOT [Suspect]
     Active Substance: OCTREOTIDE ACETATE
     Indication: Pulmonary calcification
     Dosage: UNK, QMO (1 DOSE IN 28 DAYS)
     Route: 058
  2. SANDOSTATIN LAR DEPOT [Suspect]
     Active Substance: OCTREOTIDE ACETATE
  3. SANDOSTATIN LAR DEPOT [Suspect]
     Active Substance: OCTREOTIDE ACETATE

REACTIONS (11)
  - Delirium [Unknown]
  - Anxiety [Unknown]
  - Hot flush [Unknown]
  - Pulmonary mass [Unknown]
  - Nervousness [Unknown]
  - Pyrexia [Unknown]
  - Impatience [Unknown]
  - Feeling abnormal [Unknown]
  - Illness [Unknown]
  - Stress [Unknown]
  - Product use in unapproved indication [Unknown]
